FAERS Safety Report 4811289-9 (Version None)
Quarter: 2005Q4

REPORT INFORMATION
  Report Type: 
  Country: None (occurrence: None)
  Receive Date: 20051025
  Receipt Date: 20051014
  Transmission Date: 20060501
  Serious: Yes (Death, Other)
  Sender: FDA-Public Use
  Company Number: 2005-09-1752

PATIENT
  Age: 11 Year
  Sex: Male

DRUGS (1)
  1. INTRON A [Suspect]
     Indication: LARYNGEAL PAPILLOMA
     Dosage: 3 MU TIW SUBCUTANEOUS
     Route: 058

REACTIONS (13)
  - ABSCESS [None]
  - CACHEXIA [None]
  - CIRCULATORY COLLAPSE [None]
  - DRUG INEFFECTIVE [None]
  - DYSPLASIA [None]
  - DYSPNOEA [None]
  - GRANULOMA [None]
  - LARYNGEAL DISORDER [None]
  - LIGAMENT DISORDER [None]
  - METASTATIC SQUAMOUS CELL CARCINOMA [None]
  - NEOPLASM PROGRESSION [None]
  - ULCER [None]
  - UPPER RESPIRATORY TRACT INFECTION [None]
